FAERS Safety Report 5598675-7 (Version None)
Quarter: 2007Q4

REPORT INFORMATION
  Report Type: 
  Country: None (occurrence: None)
  Receive Date: 20071226
  Receipt Date: 20071023
  Transmission Date: 20080405
  Serious: No
  Sender: FDA-Public Use
  Company Number: 2007PV033626

PATIENT
  Age: 54 Year
  Sex: Female
  Weight: 123.832 kg

DRUGS (5)
  1. SYMLIN [Suspect]
     Indication: TYPE 2 DIABETES MELLITUS
     Dosage: 240, 120, 60 MCG, TID, SC
     Route: 058
     Dates: start: 20070101, end: 20070101
  2. SYMLIN [Suspect]
     Indication: TYPE 2 DIABETES MELLITUS
     Dosage: 240, 120, 60 MCG, TID, SC
     Route: 058
     Dates: start: 20070101
  3. EXENATIDE (0.25 MG/ML) [Suspect]
     Indication: TYPE 2 DIABETES MELLITUS
     Dosage: 10 MCG, BID, SC
     Route: 058
     Dates: start: 20050101
  4. INSULIN DETEMIR [Concomitant]
  5. LANTUS [Concomitant]

REACTIONS (3)
  - INJECTION SITE ERYTHEMA [None]
  - PRURITUS [None]
  - URTICARIA [None]
